FAERS Safety Report 16868615 (Version 1)
Quarter: 2019Q3

REPORT INFORMATION
  Report Type: Spontaneous
  Country: US (occurrence: US)
  Receive Date: 20190930
  Receipt Date: 20190930
  Transmission Date: 20191005
  Serious: No
  Sender: FDA-Public Use
  Company Number: US-PFIZER INC-2019418689

PATIENT
  Age: 66 Year
  Sex: Female
  Weight: 68.49 kg

DRUGS (2)
  1. IBRANCE [Suspect]
     Active Substance: PALBOCICLIB
     Indication: BREAST CANCER METASTATIC
     Dosage: 125 MG, 1X/DAY
     Route: 048
     Dates: start: 20190911
  2. ARIMIDEX [Concomitant]
     Active Substance: ANASTROZOLE
     Indication: BREAST CANCER METASTATIC
     Dosage: 1 DF, 1X/DAY (TINY PILL ONCE A DAY BY MOUTH)
     Route: 048
     Dates: start: 201908

REACTIONS (4)
  - Arthropod bite [Unknown]
  - Gastric disorder [Unknown]
  - White blood cell count abnormal [Unknown]
  - Pyrexia [Recovered/Resolved]

NARRATIVE: CASE EVENT DATE: 201909
